FAERS Safety Report 5470734-9 (Version None)
Quarter: 2007Q3

REPORT INFORMATION
  Report Type: 
  Country: None (occurrence: None)
  Receive Date: 20070928
  Receipt Date: 20070920
  Transmission Date: 20080115
  Serious: Yes (Hospitalization)
  Sender: FDA-Public Use
  Company Number: US-JNJFOC-20070904718

PATIENT
  Sex: Male

DRUGS (3)
  1. RISPERDAL [Suspect]
     Indication: DELUSIONAL DISORDER, UNSPECIFIED TYPE
     Route: 048
  2. INVEGA [Suspect]
     Indication: DELUSIONAL DISORDER, UNSPECIFIED TYPE
     Route: 048
  3. BENADRYL [Concomitant]

REACTIONS (6)
  - ACNE [None]
  - DERMATITIS [None]
  - SKIN INFECTION [None]
  - THROAT TIGHTNESS [None]
  - TONGUE PARALYSIS [None]
  - URTICARIA [None]
